FAERS Safety Report 17262430 (Version 1)
Quarter: 2019Q4

REPORT INFORMATION
  Report Type: Spontaneous
  Country: US (occurrence: US)
  Receive Date: 20191218
  Receipt Date: 20191218
  Transmission Date: 20200122
  Serious: Yes (Death)
  Sender: FDA-Public Use
  Company Number: None

PATIENT
  Age: 20 Year
  Sex: Male

DRUGS (7)
  1. BACLOFEN. [Concomitant]
     Active Substance: BACLOFEN
  2. DEXAMETHASONE. [Concomitant]
     Active Substance: DEXAMETHASONE
  3. FAMOTIDINE. [Concomitant]
     Active Substance: FAMOTIDINE
  4. MEKINIST [Suspect]
     Active Substance: TRAMETINIB DIMETHYL SULFOXIDE
     Indication: BRAIN NEOPLASM MALIGNANT
     Route: 048
  5. PENTAM [Concomitant]
     Active Substance: PENTAMIDINE ISETHIONATE
  6. CITALOPRAM [Concomitant]
     Active Substance: CITALOPRAM HYDROBROMIDE
  7. DALFAMPRIDINE,10MG [Suspect]
     Active Substance: DALFAMPRIDINE
     Indication: BRAIN NEOPLASM MALIGNANT
     Route: 048

REACTIONS (1)
  - Death [None]
